FAERS Safety Report 9557748 (Version 2)
Quarter: 2015Q2

REPORT INFORMATION
  Report Type: Spontaneous
  Country: US (occurrence: US)
  Receive Date: 20130926
  Receipt Date: 20150515
  Transmission Date: 20150821
  Serious: Yes (Hospitalization, Other)
  Sender: FDA-Public Use
  Company Number: PHHY2013US104584

PATIENT
  Age: 56 Year
  Sex: Female

DRUGS (5)
  1. TRIAMCINOLONE [Suspect]
     Active Substance: TRIAMCINOLONE
     Indication: DRUG ERUPTION
     Route: 061
  2. PEGINTERFERON ALFA-2A [Concomitant]
     Active Substance: PEGINTERFERON ALFA-2A
     Indication: HEPATITIS C
     Dosage: 180 UG, WEEKLY
     Route: 065
  3. CLOBETASOL [Interacting]
     Active Substance: CLOBETASOL
     Indication: DRUG ERUPTION
     Route: 061
  4. RIBAVIRIN. [Concomitant]
     Active Substance: RIBAVIRIN
     Indication: HEPATITIS C
     Dosage: 1000 UNK, UNK
     Route: 065
  5. TELAPREVIR [Interacting]
     Active Substance: TELAPREVIR
     Indication: HEPATITIS C
     Dosage: 750 MG, EVERY 8 HOURS
     Route: 065

REACTIONS (9)
  - Adrenal insufficiency [Unknown]
  - Malaise [Unknown]
  - Drug interaction [Unknown]
  - Asthenia [Unknown]
  - Blood pressure abnormal [Unknown]
  - Mucosal dryness [Unknown]
  - Fatigue [Unknown]
  - Lethargy [Unknown]
  - Diarrhoea [Unknown]
